FAERS Safety Report 25175078 (Version 1)
Quarter: 2025Q2

REPORT INFORMATION
  Report Type: Spontaneous
  Country: HU (occurrence: HU)
  Receive Date: 20250408
  Receipt Date: 20250408
  Transmission Date: 20250717
  Serious: Yes (Hospitalization)
  Sender: PFIZER
  Company Number: None

PATIENT
  Age: 58 Year
  Sex: Female
  Weight: 80 kg

DRUGS (9)
  1. RUXIENCE [Suspect]
     Active Substance: RITUXIMAB-PVVR
     Route: 042
     Dates: start: 20250228, end: 20250228
  2. LEVETIRACETAM [Concomitant]
     Active Substance: LEVETIRACETAM
  3. LACOSAMIDE [Concomitant]
     Active Substance: LACOSAMIDE
  4. OLANZAPINE [Concomitant]
     Active Substance: OLANZAPINE
  5. ADEXOR [Concomitant]
     Route: 048
  6. AMLODIPINE BESYLATE\INDAPAMIDE\PERINDOPRIL ARGININE [Concomitant]
     Active Substance: AMLODIPINE BESYLATE\INDAPAMIDE\PERINDOPRIL ARGININE
     Route: 048
  7. SOLU-MEDROL [Concomitant]
     Active Substance: METHYLPREDNISOLONE SODIUM SUCCINATE
     Indication: Premedication
     Dates: start: 20250228, end: 20250228
  8. CHLOROPYRAMINE HYDROCHLORIDE [Concomitant]
     Active Substance: CHLOROPYRAMINE HYDROCHLORIDE
     Indication: Premedication
     Dates: start: 20250228, end: 20250228
  9. TEVA-MEXALEN [Concomitant]
     Indication: Premedication
     Route: 048
     Dates: start: 20250228, end: 20250228

REACTIONS (3)
  - Dyspnoea [Recovered/Resolved]
  - Dysphonia [Recovered/Resolved]
  - Oropharyngeal pain [Recovered/Resolved]

NARRATIVE: CASE EVENT DATE: 20250228
